FAERS Safety Report 24593549 (Version 1)
Quarter: 2024Q4

REPORT INFORMATION
  Report Type: Spontaneous
  Country: BG (occurrence: BG)
  Receive Date: 20241108
  Receipt Date: 20241108
  Transmission Date: 20250115
  Serious: Yes (Life-Threatening)
  Sender: TEVA
  Company Number: BG-TEVA-VS-3261004

PATIENT
  Age: 68 Year
  Sex: Male

DRUGS (5)
  1. NEBIVOLOL [Suspect]
     Active Substance: NEBIVOLOL
     Indication: Hypertension
     Dosage: HALF A TABLET A DAY
     Route: 050
  2. ALPRAZOLAM [Suspect]
     Active Substance: ALPRAZOLAM
     Indication: Major depression
     Route: 065
     Dates: start: 1996
  3. AMLODIPINE BESYLATE\TELMISARTAN [Suspect]
     Active Substance: AMLODIPINE BESYLATE\TELMISARTAN
     Indication: Hypertension
     Dosage: HALF TABLET OF TELMISARTAN/AMLODIPINE 80/5 MG
     Route: 050
  4. DULOXETINE [Suspect]
     Active Substance: DULOXETINE
     Indication: Major depression
     Route: 065
     Dates: start: 2019
  5. rosuvastatin ezetimibe [Concomitant]
     Indication: Hypercholesterolaemia
     Dosage: ROSUVASTATIN/EZETIMIBE 10/10 MG
     Dates: start: 2018

REACTIONS (1)
  - Squamous cell carcinoma [Unknown]
